FAERS Safety Report 6370844-8 (Version None)
Quarter: 2009Q3

REPORT INFORMATION
  Report Type: 
  Country: None (occurrence: None)
  Receive Date: 20090923
  Receipt Date: 20070501
  Transmission Date: 20100115
  Serious: Yes (Other)
  Sender: FDA-Public Use
  Company Number: US-ASTRAZENECA-2006UW23859

PATIENT
  Age: 18187 Day
  Sex: Female
  Weight: 124.3 kg

DRUGS (23)
  1. SEROQUEL [Suspect]
     Indication: DEPRESSION
     Dosage: 200-600 MG
     Route: 048
     Dates: start: 19991229, end: 20020724
  2. SEROQUEL [Suspect]
     Indication: AFFECTIVE DISORDER
     Dosage: 200-600 MG
     Route: 048
     Dates: start: 19991229, end: 20020724
  3. SEROQUEL [Suspect]
     Indication: MAJOR DEPRESSION
     Dosage: 200-600 MG
     Route: 048
     Dates: start: 19991229, end: 20020724
  4. SEROQUEL [Suspect]
     Route: 048
     Dates: start: 20000101
  5. SEROQUEL [Suspect]
     Route: 048
     Dates: start: 20000101
  6. SEROQUEL [Suspect]
     Route: 048
     Dates: start: 20000101
  7. ZYPREXA [Suspect]
  8. ABILIFY [Concomitant]
  9. HALDOL [Concomitant]
  10. RISPERDAL [Concomitant]
  11. NARDIL [Concomitant]
  12. KLONOPIN [Concomitant]
  13. ATIVAN [Concomitant]
     Indication: ANXIETY
     Dosage: 1-2 MG
     Route: 048
     Dates: start: 19990603
  14. ATIVAN [Concomitant]
     Indication: DEPRESSION
     Dosage: 1-2 MG
     Route: 048
     Dates: start: 19990603
  15. ATIVAN [Concomitant]
     Indication: MENTAL DISORDER
     Dosage: 1-2 MG
     Route: 048
     Dates: start: 19990603
  16. XANAX [Concomitant]
     Indication: ANXIETY
     Dosage: 0.5-2.0 MG
     Route: 048
     Dates: start: 19970724
  17. SYNTHROID [Concomitant]
     Indication: HYPOTHYROIDISM
     Dosage: 0.05-0.1 MG
     Route: 048
     Dates: start: 19980608
  18. DEPAKOTE ER [Concomitant]
     Indication: AFFECTIVE DISORDER
     Route: 048
     Dates: start: 19970624
  19. TRAZODONE [Concomitant]
     Indication: MAJOR DEPRESSION
     Dosage: 50-300 MG
     Route: 048
     Dates: start: 20000103
  20. IMIPRAMINE [Concomitant]
     Indication: MAJOR DEPRESSION
     Route: 048
     Dates: start: 19991217
  21. EFFEXOR XR [Concomitant]
     Indication: BIPOLAR I DISORDER
     Dosage: 150-300 MG
     Route: 048
     Dates: start: 19990517
  22. HYZAAR [Concomitant]
     Indication: BLOOD PRESSURE
     Dosage: 50/12.5 MG, BID
     Route: 048
     Dates: start: 20000131
  23. PREMARIN [Concomitant]
     Indication: HORMONE LEVEL ABNORMAL
     Route: 048
     Dates: start: 20010515

REACTIONS (3)
  - DIABETES MELLITUS [None]
  - SUICIDAL IDEATION [None]
  - TYPE 2 DIABETES MELLITUS [None]
